FAERS Safety Report 16347944 (Version 1)
Quarter: 2019Q2

REPORT INFORMATION
  Report Type: Spontaneous
  Country: US (occurrence: US)
  Receive Date: 20190523
  Receipt Date: 20190523
  Transmission Date: 20190711
  Serious: No
  Sender: FDA-Public Use
  Company Number: US-IGSA-SR10007424

PATIENT
  Age: 35 Year
  Sex: Female
  Weight: 61 kg

DRUGS (4)
  1. GAMUNEX-C [Suspect]
     Active Substance: HUMAN IMMUNOGLOBULIN G
     Dosage: 10 G, Q.M.T.
     Route: 042
     Dates: start: 20181123, end: 20181123
  2. BENADRYL [Concomitant]
     Active Substance: DIPHENHYDRAMINE HYDROCHLORIDE
     Indication: PREMEDICATION
     Dosage: 50 MG, SINGLE
     Route: 042
  3. GAMUNEX-C [Suspect]
     Active Substance: HUMAN IMMUNOGLOBULIN G
     Indication: CHRONIC INFLAMMATORY DEMYELINATING POLYRADICULONEUROPATHY
     Dosage: 20 G, Q.M.T.
     Route: 042
     Dates: start: 20181123, end: 20181123
  4. SILVER COLLOIDAL W/SILVER [Concomitant]
     Indication: EPSTEIN-BARR VIRUS INFECTION
     Dosage: UNK
     Route: 048
     Dates: start: 20181121, end: 20181121

REACTIONS (2)
  - Pruritus [Recovered/Resolved]
  - Urticaria [Recovering/Resolving]

NARRATIVE: CASE EVENT DATE: 20181123
